FAERS Safety Report 7136053-X (Version None)
Quarter: 2010Q4

REPORT INFORMATION
  Report Type: 
  Country: None (occurrence: None)
  Receive Date: 20101204
  Receipt Date: 20101110
  Transmission Date: 20110411
  Serious: Yes (Hospitalization, Other)
  Sender: FDA-Public Use
  Company Number: US-BAYER-201030389NA

PATIENT

DRUGS (9)
  1. YAZ [Suspect]
     Indication: ORAL CONTRACEPTION
     Dates: start: 20070401
  2. XYZAL [Concomitant]
     Route: 048
     Dates: start: 20080807
  3. PROPYLTHIOURACIL [Concomitant]
     Route: 048
     Dates: start: 20080807
  4. ACCUTANE [Concomitant]
     Indication: ACNE
  5. ACIPHEX [Concomitant]
  6. BENTYL [Concomitant]
  7. PREVACID [Concomitant]
     Route: 048
  8. PRILOSEC [Concomitant]
     Route: 048
  9. VITAMIN E [Concomitant]
     Route: 048

REACTIONS (2)
  - CHOLECYSTITIS [None]
  - DEEP VEIN THROMBOSIS [None]
